FAERS Safety Report 11114659 (Version 5)
Quarter: 2015Q3

REPORT INFORMATION
  Report Type: Spontaneous
  Country: US (occurrence: US)
  Receive Date: 20150515
  Receipt Date: 20150716
  Transmission Date: 20151125
  Serious: No
  Sender: FDA-Public Use
  Company Number: US-009507513-1505USA003921

PATIENT
  Age: 28 Year
  Sex: Female
  Weight: 67.57 kg

DRUGS (4)
  1. PROAIR HFA [Concomitant]
     Active Substance: ALBUTEROL SULFATE
     Dosage: FOUR TIMES A DAY AS NEEDED
     Route: 055
     Dates: start: 20140714
  2. FLOVENT [Concomitant]
     Active Substance: FLUTICASONE PROPIONATE
     Dosage: UNK
     Dates: start: 20100505
  3. NEXPLANON [Suspect]
     Active Substance: ETONOGESTREL
     Indication: CONTRACEPTION
     Dosage: 1 ROD, 3 YEARS
     Route: 059
     Dates: start: 20150323
  4. ZYRTEC [Concomitant]
     Active Substance: CETIRIZINE HYDROCHLORIDE
     Dosage: 1 TABLET EVERY MORNING
     Route: 048
     Dates: start: 20141107

REACTIONS (12)
  - Vaginal infection [Unknown]
  - Exposure during pregnancy [Unknown]
  - Device difficult to use [Not Recovered/Not Resolved]
  - Menstruation delayed [Unknown]
  - Breast feeding [Unknown]
  - Muscle spasms [Unknown]
  - Device dislocation [Not Recovered/Not Resolved]
  - Nausea [Unknown]
  - Irritability [Unknown]
  - Vulvovaginitis [Unknown]
  - Medical device complication [Not Recovered/Not Resolved]
  - Device deployment issue [Not Recovered/Not Resolved]

NARRATIVE: CASE EVENT DATE: 2015
